FAERS Safety Report 5953954-6 (Version None)
Quarter: 2008Q4

REPORT INFORMATION
  Report Type: 
  Country: None (occurrence: None)
  Receive Date: 20081114
  Receipt Date: 20081111
  Transmission Date: 20090506
  Serious: Yes (Life-Threatening, Other)
  Sender: FDA-Public Use
  Company Number: US-GENENTECH-270656

PATIENT
  Sex: Male
  Weight: 70.295 kg

DRUGS (2)
  1. XOLAIR [Suspect]
     Indication: ASTHMA
     Dosage: 150 MG, Q2W
     Route: 058
     Dates: start: 20080515
  2. XOLAIR [Suspect]
     Dosage: UNK
     Route: 042
     Dates: start: 20080801

REACTIONS (1)
  - PLATELET COUNT DECREASED [None]
